FAERS Safety Report 7570946-4 (Version None)
Quarter: 2011Q2

REPORT INFORMATION
  Report Type: 
  Country: None (occurrence: None)
  Receive Date: 20110622
  Receipt Date: 20110622
  Transmission Date: 20111010
  Serious: No
  Sender: FDA-Public Use
  Company Number: None

PATIENT
  Sex: Female
  Weight: 63.5036 kg

DRUGS (2)
  1. ACTONEL [Suspect]
     Indication: OSTEOPENIA
     Dosage: 150MG 1 X A MONTH ORAL MID OCT-MID NOV 2010 + 04/14/2011
     Route: 048
  2. ACTONEL [Suspect]
     Indication: OSTEOPOROSIS
     Dosage: 150MG 1 X A MONTH ORAL MID OCT-MID NOV 2010 + 04/14/2011
     Route: 048

REACTIONS (4)
  - PAIN IN EXTREMITY [None]
  - ARTHRALGIA [None]
  - JOINT EFFUSION [None]
  - JOINT SWELLING [None]
